FAERS Safety Report 6749082-2 (Version None)
Quarter: 2010Q2

REPORT INFORMATION
  Report Type: 
  Country: None (occurrence: None)
  Receive Date: 20100601
  Receipt Date: 20100521
  Transmission Date: 20101027
  Serious: Yes (Hospitalization)
  Sender: FDA-Public Use
  Company Number: FR-JNJFOC-20100509728

PATIENT
  Age: 48 Year
  Sex: Male

DRUGS (5)
  1. REMICADE [Suspect]
     Indication: DRUG USE FOR UNKNOWN INDICATION
     Route: 042
  2. REMICADE [Suspect]
     Dosage: 28TH INFLIXIMAB INFUSION
     Route: 042
  3. METHOTREXATE [Suspect]
     Indication: DRUG USE FOR UNKNOWN INDICATION
  4. KENZEN [Concomitant]
     Route: 048
  5. AMLOR [Concomitant]
     Route: 048

REACTIONS (1)
  - MALIGNANT MELANOMA IN SITU [None]
